FAERS Safety Report 9836745 (Version 2)
Quarter: 2014Q2

REPORT INFORMATION
  Report Type: Spontaneous
  Country: BR (occurrence: BR)
  Receive Date: 20140123
  Receipt Date: 20140402
  Transmission Date: 20141212
  Serious: Yes (Hospitalization, Other)
  Sender: FDA-Public Use
  Company Number: PHHY2014BR007257

PATIENT
  Sex: Female
  Weight: 45 kg

DRUGS (3)
  1. DIOVAN AMLO FIX [Suspect]
     Dosage: 1 DF,(80 MG VAL/ 5MG AMLO) DAILY
     Route: 048
  2. LIPTOR [Concomitant]
     Indication: BLOOD CHOLESTEROL
     Dosage: 1 DF, (10 MG) DAILY
     Route: 048
  3. PLAGREL [Concomitant]
     Indication: THROMBOSIS
     Dosage: 1 DF, DAILY
     Route: 048

REACTIONS (2)
  - Pneumonia [Unknown]
  - Parkinson^s disease [Unknown]
